FAERS Safety Report 5809295-0 (Version None)
Quarter: 2008Q3

REPORT INFORMATION
  Report Type: 
  Country: None (occurrence: None)
  Receive Date: 20080714
  Receipt Date: 20080618
  Transmission Date: 20090109
  Serious: No
  Sender: FDA-Public Use
  Company Number: US-BOEHRINGER INGELHEIM GMBH, GERMANY-2008-BP-08170BP

PATIENT
  Age: 81 Year
  Sex: Female

DRUGS (7)
  1. SPIRIVA [Suspect]
     Indication: CHRONIC OBSTRUCTIVE PULMONARY DISEASE
     Route: 055
  2. CARDIZEM [Concomitant]
     Indication: HYPERTENSION
  3. ZOCOR [Concomitant]
     Indication: BLOOD CHOLESTEROL INCREASED
  4. GLIPIZIDE [Concomitant]
     Indication: DIABETES MELLITUS
  5. HYDROCHLOROT [Concomitant]
  6. VITAMIN E [Concomitant]
  7. CALCIUM [Concomitant]

REACTIONS (1)
  - RASH PRURITIC [None]
